FAERS Safety Report 11059270 (Version 1)
Quarter: 2015Q2

REPORT INFORMATION
  Report Type: Spontaneous
  Country: US (occurrence: None)
  Receive Date: 20150422
  Receipt Date: 20150422
  Transmission Date: 20150821
  Serious: No
  Sender: FDA-Public Use
  Company Number: None

PATIENT
  Age: 36 Year
  Sex: Female
  Weight: 72.58 kg

DRUGS (1)
  1. RITUXAN [Suspect]
     Active Substance: RITUXIMAB
     Indication: MULTIPLE SCLEROSIS
     Route: 042
     Dates: start: 20150417

REACTIONS (5)
  - Infusion related reaction [None]
  - Scleral discolouration [None]
  - Throat irritation [None]
  - Rash [None]
  - Rash erythematous [None]

NARRATIVE: CASE EVENT DATE: 20150417
